FAERS Safety Report 8438752-6 (Version None)
Quarter: 2012Q2

REPORT INFORMATION
  Report Type: 
  Country: None (occurrence: None)
  Receive Date: 20120611
  Receipt Date: 20120611
  Transmission Date: 20120825
  Serious: Yes (Hospitalization, Disabling, Congenital Anomaly, Other)
  Sender: FDA-Public Use
  Company Number: None

PATIENT
  Age: 13 Year
  Sex: Female
  Weight: 49.8957 kg

DRUGS (2)
  1. MINOCYCLINE HCL [Suspect]
     Indication: ACNE
     Dosage: 1 CAPSULE TWICE A DAY
     Dates: start: 20110618
  2. MINOCYCLINE HCL [Suspect]
     Indication: ACNE
     Dosage: 1 CAPSULE TWICE A DAY
     Dates: start: 20110512

REACTIONS (5)
  - REPETITIVE SPEECH [None]
  - HYPOPHAGIA [None]
  - ANXIETY [None]
  - INSOMNIA [None]
  - WEIGHT DECREASED [None]
